FAERS Safety Report 8281741-5 (Version None)
Quarter: 2012Q2

REPORT INFORMATION
  Report Type: 
  Country: None (occurrence: None)
  Receive Date: 20120413
  Receipt Date: 20120405
  Transmission Date: 20120825
  Serious: Yes (Other)
  Sender: FDA-Public Use
  Company Number: US-JNJFOC-20110702269

PATIENT
  Sex: Female
  Weight: 68.04 kg

DRUGS (1)
  1. RISPERDAL CONSTA [Suspect]
     Indication: ACCIDENTAL EXPOSURE
     Route: 030
     Dates: start: 20110621

REACTIONS (2)
  - EXPOSURE TO CONTAMINATED DEVICE [None]
  - MEDICAL DEVICE COMPLICATION [None]
